FAERS Safety Report 15825012 (Version 4)
Quarter: 2019Q2

REPORT INFORMATION
  Report Type: Spontaneous
  Country: HU (occurrence: HU)
  Receive Date: 20190115
  Receipt Date: 20190408
  Transmission Date: 20190711
  Serious: Yes (Death, Life-Threatening, Hospitalization, Other)
  Sender: FDA-Public Use
  Company Number: HU-ASTELLAS-2019US001524

PATIENT
  Age: 23 Year
  Sex: Female

DRUGS (2)
  1. VORICONAZOLE. [Concomitant]
     Active Substance: VORICONAZOLE
     Indication: PRODUCT USED FOR UNKNOWN INDICATION
     Dosage: UNK UNK, UNKNOWN FREQ.
     Route: 065
  2. PROGRAF [Suspect]
     Active Substance: TACROLIMUS\TACROLIMUS ANHYDROUS
     Indication: PROPHYLAXIS AGAINST TRANSPLANT REJECTION
     Route: 048
     Dates: start: 201805, end: 201809

REACTIONS (10)
  - Lung infiltration [Unknown]
  - Pyrexia [Unknown]
  - Lung transplant rejection [Fatal]
  - Respiratory failure [Unknown]
  - Sepsis [Fatal]
  - Drug level below therapeutic [Unknown]
  - Dyspnoea [Unknown]
  - Treatment noncompliance [Unknown]
  - Graft infection [Fatal]
  - Product use in unapproved indication [Unknown]

NARRATIVE: CASE EVENT DATE: 201805
